FAERS Safety Report 14320287 (Version 1)
Quarter: 2017Q4

REPORT INFORMATION
  Report Type: Spontaneous
  Country: US (occurrence: US)
  Receive Date: 20171222
  Receipt Date: 20171222
  Transmission Date: 20180321
  Serious: No
  Sender: FDA-Public Use
  Company Number: None

PATIENT
  Age: 74 Year
  Sex: Female

DRUGS (2)
  1. BIOTENE NOS [Suspect]
     Active Substance: CETYLPYRIDINIUM CHLORIDE OR SODIUM FLUORIDE OR SODIUM MONOFLUOROPHOSPHATE OR GLUCOSE OXIDASE\LACTOFERRIN\LACTOPEROXIDASE BOVINE\LYSOZYME
     Indication: DENTAL CLEANING
  2. BIOTENE GENTLE MINT NOS [Suspect]
     Active Substance: SODIUM FLUORIDE OR SODIUM MONOFLUOROPHOSPHATE
     Indication: DENTAL CLEANING

REACTIONS (2)
  - Stomatitis [None]
  - Oral mucosal blistering [None]

NARRATIVE: CASE EVENT DATE: 20171129
